FAERS Safety Report 24053664 (Version 3)
Quarter: 2025Q1

REPORT INFORMATION
  Report Type: Spontaneous
  Country: JP (occurrence: JP)
  Receive Date: 20240705
  Receipt Date: 20250124
  Transmission Date: 20250409
  Serious: Yes (Other)
  Sender: ROCHE
  Company Number: JP-ROCHE-10000008894

PATIENT
  Age: 31 Year
  Sex: Male

DRUGS (16)
  1. MYCOPHENOLATE MOFETIL [Suspect]
     Active Substance: MYCOPHENOLATE MOFETIL
     Indication: Prophylaxis against transplant rejection
     Route: 065
  2. GANCICLOVIR [Suspect]
     Active Substance: GANCICLOVIR
     Indication: Adenovirus infection
     Route: 042
  3. CYTARABINE [Suspect]
     Active Substance: CYTARABINE
     Indication: Prophylaxis against transplant rejection
     Route: 065
  4. CYCLOPHOSPHAMIDE [Suspect]
     Active Substance: CYCLOPHOSPHAMIDE
     Indication: Prophylaxis against transplant rejection
     Route: 065
  5. CYCLOPHOSPHAMIDE [Suspect]
     Active Substance: CYCLOPHOSPHAMIDE
     Route: 065
  6. TACROLIMUS [Suspect]
     Active Substance: TACROLIMUS
     Indication: Prophylaxis against transplant rejection
     Route: 065
  7. FLUDARABINE [Suspect]
     Active Substance: FLUDARABINE PHOSPHATE
     Indication: Prophylaxis against transplant rejection
     Route: 065
  8. CYCLOPHOSPHAMIDE [Concomitant]
     Active Substance: CYCLOPHOSPHAMIDE
  9. LETERMOVIR [Concomitant]
     Active Substance: LETERMOVIR
     Route: 048
  10. DAUNORUBICIN [Concomitant]
     Active Substance: DAUNORUBICIN
  11. VINCRISTINE [Concomitant]
     Active Substance: VINCRISTINE
  12. DEXAMETHASONE [Concomitant]
     Active Substance: DEXAMETHASONE
     Route: 042
  13. PREDNISONE [Concomitant]
     Active Substance: PREDNISONE
  14. HYDROCORTISONE [Concomitant]
     Active Substance: HYDROCORTISONE
  15. ASPARAGINASE [Concomitant]
     Active Substance: ASPARAGINASE
  16. GILTERITINIB [Concomitant]
     Active Substance: GILTERITINIB
     Route: 048

REACTIONS (6)
  - Haemophagocytic lymphohistiocytosis [Unknown]
  - Venoocclusive liver disease [Unknown]
  - Cystitis haemorrhagic [Unknown]
  - Adenovirus infection [Unknown]
  - Adenoviral conjunctivitis [Recovered/Resolved]
  - Off label use [Unknown]
